FAERS Safety Report 8614830-3 (Version None)
Quarter: 2012Q3

REPORT INFORMATION
  Report Type: 
  Country: None (occurrence: None)
  Receive Date: 20120823
  Receipt Date: 20120810
  Transmission Date: 20120928
  Serious: Yes (Other)
  Sender: FDA-Public Use
  Company Number: JP-VERTEX PHARMACEUTICAL INC.-2012-019718

PATIENT
  Age: 59 Year
  Sex: Male

DRUGS (13)
  1. VX-950 [Suspect]
     Dosage: 1500 MG, QD
     Route: 048
     Dates: start: 20120509, end: 20120509
  2. PEGINTRON                          /01543001/ [Concomitant]
     Dosage: 80 A?G, UNK
     Route: 058
     Dates: start: 20120508, end: 20120725
  3. RIKKUNSHITO [Suspect]
     Dosage: 7.5 G, QD
     Route: 048
     Dates: start: 20120508, end: 20120725
  4. PEGINTRON                          /01543001/ [Concomitant]
     Dosage: 50 A?G, UNK
     Route: 058
     Dates: start: 20120801, end: 20120801
  5. VX-950 [Suspect]
     Indication: HEPATITIS C
     Dosage: 2250 MG, QD
     Route: 048
     Dates: start: 20120508, end: 20120508
  6. REBETOL [Concomitant]
     Dosage: 600 MG, QD
     Route: 048
     Dates: start: 20120508, end: 20120515
  7. REBETOL [Concomitant]
     Dosage: 200 MG, UNK
     Route: 048
     Dates: start: 20120528, end: 20120612
  8. REBETOL [Concomitant]
     Dosage: 400 UNK, UNK
     Route: 048
     Dates: start: 20120704, end: 20120717
  9. REBETOL [Concomitant]
     Dosage: 400 UNK, UNK
     Route: 048
     Dates: start: 20120516, end: 20120522
  10. REBETOL [Concomitant]
     Dosage: 200 UNK, UNK
     Route: 048
     Dates: start: 20120613, end: 20120703
  11. REBETOL [Concomitant]
     Dosage: 200 UNK, UNK
     Route: 048
     Dates: start: 20120718, end: 20120801
  12. OLOPATADINE HCL [Concomitant]
     Dosage: 10 MG, QD
     Route: 048
     Dates: start: 20120508
  13. REBETOL [Concomitant]
     Dosage: 200 UNK, UNK
     Route: 048
     Dates: start: 20120523, end: 20120527

REACTIONS (1)
  - DRUG-INDUCED LIVER INJURY [None]
